FAERS Safety Report 10141891 (Version 1)
Quarter: 2014Q2

REPORT INFORMATION
  Report Type: Spontaneous
  Country: US (occurrence: US)
  Receive Date: 20140429
  Receipt Date: 20140429
  Transmission Date: 20141212
  Serious: No
  Sender: FDA-Public Use
  Company Number: US-ASTRAZENECA-2014SE24306

PATIENT
  Age: 10 Year
  Sex: Male

DRUGS (1)
  1. PULMICORT [Suspect]
     Dosage: 90 MCG, 2 PUFFS BID
     Route: 055
     Dates: start: 20121203

REACTIONS (2)
  - Cough [Unknown]
  - Device misuse [Unknown]
